FAERS Safety Report 18521499 (Version 1)
Quarter: 2020Q4

REPORT INFORMATION
  Report Type: Spontaneous
  Country: US (occurrence: US)
  Receive Date: 20201118
  Receipt Date: 20201118
  Transmission Date: 20210114
  Serious: Yes (Other)
  Sender: FDA-Public Use
  Company Number: None

PATIENT
  Age: 11 Year
  Sex: Male
  Weight: 29.94 kg

DRUGS (1)
  1. METHYLPHENIDATE 27MG [Suspect]
     Active Substance: METHYLPHENIDATE
     Indication: ATTENTION DEFICIT HYPERACTIVITY DISORDER
     Dosage: ?          OTHER FREQUENCY:QAM;?
     Route: 048
     Dates: start: 20191024, end: 20191203

REACTIONS (2)
  - Depressed mood [None]
  - Product substitution issue [None]
